FAERS Safety Report 8957570 (Version 2)
Quarter: 2013Q1

REPORT INFORMATION
  Report Type: Spontaneous
  Country: US (occurrence: US)
  Receive Date: 20121211
  Receipt Date: 20130122
  Transmission Date: 20140127
  Serious: Yes (Death, Disabling, Other)
  Sender: FDA-Public Use
  Company Number: US-CELGENEUS-163-CCAZA-12110474

PATIENT
  Age: 77 Year
  Sex: Male
  Weight: 81.72 kg

DRUGS (4)
  1. AZACITIDINE INJECTABLE [Suspect]
     Indication: CHRONIC MYELOMONOCYTIC LEUKAEMIA
     Dosage: 149 MILLIGRAM
     Route: 058
     Dates: start: 20100629, end: 20101009
  2. MULTIVITAMINS [Concomitant]
     Indication: PRODUCT USED FOR UNKNOWN INDICATION
     Route: 048
  3. REVLIMID [Concomitant]
     Indication: CHRONIC MYELOMONOCYTIC LEUKAEMIA
     Dosage: 25 MILLIGRAM
     Route: 048
     Dates: start: 20101118
  4. FLUDARABINE [Concomitant]
     Indication: CHRONIC MYELOMONOCYTIC LEUKAEMIA
     Route: 065
     Dates: start: 201012

REACTIONS (2)
  - Pancytopenia [Fatal]
  - Chronic myelomonocytic leukaemia [Fatal]
